FAERS Safety Report 10311140 (Version 2)
Quarter: 2014Q4

REPORT INFORMATION
  Report Type: Spontaneous
  Country: VN (occurrence: VN)
  Receive Date: 20140717
  Receipt Date: 20141107
  Transmission Date: 20150528
  Serious: Yes (Disabling, Other)
  Sender: FDA-Public Use
  Company Number: VN-SA-2014SA090988

PATIENT
  Age: 54 Year
  Sex: Male

DRUGS (1)
  1. LOVENOX [Suspect]
     Active Substance: ENOXAPARIN SODIUM
     Indication: THROMBOSIS
     Dosage: DOSE: 0.01 ML/KG X 2 DAYS
     Route: 058

REACTIONS (3)
  - Muscle disorder [Unknown]
  - Paraplegia [Not Recovered/Not Resolved]
  - Myelitis transverse [Recovered/Resolved with Sequelae]
